FAERS Safety Report 7477618-5 (Version None)
Quarter: 2011Q2

REPORT INFORMATION
  Report Type: 
  Country: None (occurrence: None)
  Receive Date: 20110513
  Receipt Date: 20101228
  Transmission Date: 20111010
  Serious: Yes (Hospitalization)
  Sender: FDA-Public Use
  Company Number: US-BAYER-201018765NA

PATIENT
  Age: 25 Year
  Sex: Female
  Weight: 50 kg

DRUGS (13)
  1. IMITREX [Concomitant]
     Dosage: UNK
     Dates: start: 20050301
  2. MIGRANAL [Concomitant]
  3. PROZAC [Concomitant]
     Dosage: UNK
     Dates: start: 20070201
  4. SUBLIMAZE PRESERVATIVE FREE [Concomitant]
     Dosage: UNK
     Dates: start: 20080101
  5. LITHIUM CARBONATE [Concomitant]
     Dosage: UNK
     Dates: start: 20070201
  6. LAMICTAL [Concomitant]
     Dosage: UNK
     Dates: start: 20050301
  7. EFFEXOR [Concomitant]
     Dosage: UNK
     Dates: start: 20080101
  8. LORA TAB [Concomitant]
     Dosage: UNK
     Dates: start: 20080101
  9. YAZ [Suspect]
     Indication: PRODUCT USED FOR UNKNOWN INDICATION
     Dosage: UNK UNK, UNK
     Route: 048
     Dates: start: 20070101, end: 20080101
  10. ADVIL LIQUI-GELS [Concomitant]
  11. VICODIN [Concomitant]
     Dosage: UNK
     Route: 048
     Dates: start: 20071101
  12. TRAZODONE HCL [Concomitant]
     Dosage: UNK
     Dates: start: 20050301
  13. ZANTAC [Concomitant]
     Dosage: UNK
     Dates: start: 20080101

REACTIONS (1)
  - GALLBLADDER INJURY [None]
